FAERS Safety Report 10181099 (Version 2)
Quarter: 2014Q2

REPORT INFORMATION
  Report Type: Spontaneous
  Country: US (occurrence: US)
  Receive Date: 20140519
  Receipt Date: 20140519
  Transmission Date: 20141212
  Serious: No
  Sender: FDA-Public Use
  Company Number: US-AMGEN INC.-USASP2014020047

PATIENT
  Age: 69 Year
  Sex: Female

DRUGS (8)
  1. PROLIA [Suspect]
     Indication: OSTEOPOROSIS POSTMENOPAUSAL
     Dosage: UNK UNK, Q6MO
     Route: 058
     Dates: start: 20131028
  2. METFORMIN [Concomitant]
  3. NEURONTIN [Concomitant]
  4. LIPITOR [Concomitant]
  5. AROMASIN [Concomitant]
  6. TAMOXIFEN [Concomitant]
  7. ZETIA [Concomitant]
  8. BENAZEPRIL [Concomitant]

REACTIONS (5)
  - Tooth discolouration [Unknown]
  - Tooth loss [Unknown]
  - Ear pain [Unknown]
  - Dysphagia [Unknown]
  - Tooth disorder [Recovering/Resolving]
